FAERS Safety Report 25588166 (Version 1)
Quarter: 2025Q3

REPORT INFORMATION
  Report Type: Spontaneous
  Country: US (occurrence: US)
  Receive Date: 20250722
  Receipt Date: 20250722
  Transmission Date: 20251020
  Serious: Yes (Other)
  Sender: OREXO
  Company Number: US-OREXO-ORE202507-000043

PATIENT
  Age: 68 Year
  Sex: Male

DRUGS (3)
  1. BUPRENORPHINE\NALOXONE [Suspect]
     Active Substance: BUPRENORPHINE\NALOXONE
     Indication: Back pain
     Dosage: BUPRENORPHINE 4 MG-NALOXONE 1 MG
     Route: 065
  2. GABAPENTIN [Concomitant]
     Active Substance: GABAPENTIN
     Indication: Product used for unknown indication
     Route: 065
  3. TRAZODONE [Concomitant]
     Active Substance: TRAZODONE HYDROCHLORIDE
     Indication: Product used for unknown indication
     Route: 065

REACTIONS (4)
  - Hypoventilation [Unknown]
  - Hypoxia [Unknown]
  - Obstructive sleep apnoea syndrome [Unknown]
  - Product use in unapproved indication [Unknown]
